FAERS Safety Report 11109594 (Version 1)
Quarter: 2015Q2

REPORT INFORMATION
  Report Type: Spontaneous
  Country: US (occurrence: None)
  Receive Date: 20150512
  Receipt Date: 20150512
  Transmission Date: 20150821
  Serious: Yes (Hospitalization)
  Sender: FDA-Public Use
  Company Number: None

PATIENT
  Age: 58 Year
  Sex: Male
  Weight: 118 kg

DRUGS (7)
  1. NUBAIN [Concomitant]
     Active Substance: NALBUPHINE HYDROCHLORIDE
  2. NS [Concomitant]
     Active Substance: SODIUM CHLORIDE
  3. ZOFRAN [Concomitant]
     Active Substance: ONDANSETRON HYDROCHLORIDE
  4. LEVAQUIN [Suspect]
     Active Substance: LEVOFLOXACIN
     Indication: DIABETES MELLITUS
     Route: 042
     Dates: start: 20150502, end: 20150506
  5. FLOMAX [Concomitant]
     Active Substance: TAMSULOSIN HYDROCHLORIDE
  6. LEVAQUIN [Suspect]
     Active Substance: LEVOFLOXACIN
     Indication: CALCULUS URETHRAL
     Route: 042
     Dates: start: 20150502, end: 20150506
  7. LEVAQUIN [Suspect]
     Active Substance: LEVOFLOXACIN
     Indication: HYDRONEPHROSIS
     Route: 042
     Dates: start: 20150502, end: 20150506

REACTIONS (3)
  - Blood alkaline phosphatase increased [None]
  - Aspartate aminotransferase increased [None]
  - Alanine aminotransferase increased [None]

NARRATIVE: CASE EVENT DATE: 20150502
